APPROVED DRUG PRODUCT: ACETAMINOPHEN
Active Ingredient: ACETAMINOPHEN
Strength: 1GM/100ML (10MG/ML)
Dosage Form/Route: SOLUTION;INTRAVENOUS
Application: A202605 | Product #001 | TE Code: AP1
Applicant: HIKMA PHARMACEUTICALS USA INC
Approved: Jun 13, 2016 | RLD: No | RS: No | Type: RX